FAERS Safety Report 10997310 (Version 1)
Quarter: 2015Q2

REPORT INFORMATION
  Report Type: Spontaneous
  Country: US (occurrence: US)
  Receive Date: 20150408
  Receipt Date: 20150408
  Transmission Date: 20150821
  Serious: No
  Sender: FDA-Public Use
  Company Number: US-BANPHARM-20142565

PATIENT
  Age: 75 Year
  Sex: Female

DRUGS (3)
  1. LOSARTAN [Concomitant]
     Active Substance: LOSARTAN
     Dates: start: 201101
  2. NAPROXEN SODIUM 220 MG [Suspect]
     Active Substance: NAPROXEN SODIUM
     Indication: PAIN
     Dosage: 220 MG, PRN,
     Route: 048
     Dates: start: 201403, end: 20140326
  3. ATENOLOL. [Concomitant]
     Active Substance: ATENOLOL
     Dates: start: 201101

REACTIONS (1)
  - Drug ineffective [Unknown]
